FAERS Safety Report 8905980 (Version 32)
Quarter: 2014Q4

REPORT INFORMATION
  Report Type: Spontaneous
  Country: US (occurrence: US)
  Receive Date: 20121109
  Receipt Date: 20141203
  Transmission Date: 20150529
  Serious: Yes (Hospitalization, Other)
  Sender: FDA-Public Use
  Company Number: US-GLAXOSMITHKLINE-A1000304A

PATIENT
  Age: 31 Year
  Sex: Male

DRUGS (17)
  1. FLOLAN [Suspect]
     Active Substance: EPOPROSTENOL SODIUM
     Dosage: UNK
  2. FLOLAN [Suspect]
     Active Substance: EPOPROSTENOL SODIUM
     Dosage: UNK
  3. FLOLAN [Suspect]
     Active Substance: EPOPROSTENOL SODIUM
     Dosage: 17.5NG/KG/MIN, CONTINUOUSLY
  4. FLOLAN [Suspect]
     Active Substance: EPOPROSTENOL SODIUM
     Dosage: 17.5 NG/KG/MIN, CONTINUOUS
     Dates: start: 20120510
  5. FLOLAN [Suspect]
     Active Substance: EPOPROSTENOL SODIUM
     Indication: COR PULMONALE CHRONIC
     Dosage: 15.5 NG/KG/MINUTE, CONC: 15,000 NG/MLVIAL STRENGTH: 1.5 MG, PUMP RATE: 89 ML/DAY16 NG/KG/MIN17N[...]
     Route: 042
     Dates: start: 20120504
  6. FLOLAN [Suspect]
     Active Substance: EPOPROSTENOL SODIUM
     Dosage: UNK
  7. FLOLAN [Suspect]
     Active Substance: EPOPROSTENOL SODIUM
     Indication: PULMONARY HYPERTENSION
     Dosage: UNK
  8. FLOLAN [Suspect]
     Active Substance: EPOPROSTENOL SODIUM
     Dosage: UNK
  9. FLOLAN [Suspect]
     Active Substance: EPOPROSTENOL SODIUM
     Dosage: UNK
  10. FLOLAN [Suspect]
     Active Substance: EPOPROSTENOL SODIUM
     Dosage: UNK
  11. FLOLAN [Suspect]
     Active Substance: EPOPROSTENOL SODIUM
     Dosage: UNK
  12. FLOLAN [Suspect]
     Active Substance: EPOPROSTENOL SODIUM
     Dosage: UNK
  13. FLOLAN [Suspect]
     Active Substance: EPOPROSTENOL SODIUM
     Dosage: UNK
  14. FLOLAN [Suspect]
     Active Substance: EPOPROSTENOL SODIUM
     Dosage: UNK
  15. FLOLAN [Suspect]
     Active Substance: EPOPROSTENOL SODIUM
     Dosage: UNK
  16. REVATIO [Concomitant]
     Active Substance: SILDENAFIL CITRATE
  17. FLOLAN [Suspect]
     Active Substance: EPOPROSTENOL SODIUM
     Dosage: UNK

REACTIONS (27)
  - Cardiac failure chronic [Recovered/Resolved]
  - Cough [Unknown]
  - Dyspnoea [Unknown]
  - Infusion site pain [Not Recovered/Not Resolved]
  - Chest pain [Not Recovered/Not Resolved]
  - Upper respiratory tract infection [Recovered/Resolved]
  - Infusion site pain [Unknown]
  - Device leakage [Unknown]
  - Seizure [Unknown]
  - Cardioversion [Unknown]
  - Weight increased [Recovered/Resolved]
  - Catheterisation cardiac [Unknown]
  - Haemoptysis [Recovered/Resolved]
  - Device related infection [Unknown]
  - Asthenia [Unknown]
  - Groin pain [Unknown]
  - Haemoptysis [Unknown]
  - Catheter site haemorrhage [Recovered/Resolved]
  - Ill-defined disorder [Unknown]
  - Medical device complication [Unknown]
  - Hospitalisation [Unknown]
  - Pulmonary embolism [Recovered/Resolved]
  - Injection site warmth [Recovered/Resolved]
  - Panic attack [Recovered/Resolved]
  - Device leakage [Recovered/Resolved]
  - Infusion site swelling [Unknown]
  - Catheter site erythema [Unknown]

NARRATIVE: CASE EVENT DATE: 20121102
